FAERS Safety Report 7989360-2 (Version None)
Quarter: 2011Q4

REPORT INFORMATION
  Report Type: 
  Country: None (occurrence: None)
  Receive Date: 20111216
  Receipt Date: 20111216
  Transmission Date: 20120403
  Serious: Yes (Other)
  Sender: FDA-Public Use
  Company Number: None

PATIENT
  Age: 72 Year
  Sex: Female

DRUGS (6)
  1. PROTONIX [Concomitant]
  2. XANAX [Concomitant]
  3. FOSAMAX [Concomitant]
  4. ZOCOR [Concomitant]
  5. LEVOTHROID [Concomitant]
  6. AMPYRA [Suspect]
     Indication: MULTIPLE SCLEROSIS
     Dosage: 10MG Q12H ORALLY
     Route: 048

REACTIONS (1)
  - NO THERAPEUTIC RESPONSE [None]
